FAERS Safety Report 5314852-4 (Version None)
Quarter: 2007Q2

REPORT INFORMATION
  Report Type: 
  Country: None (occurrence: None)
  Receive Date: 20070426
  Receipt Date: 20070411
  Transmission Date: 20071010
  Serious: Yes (Other)
  Sender: FDA-Public Use
  Company Number: PAR_01513_2007

PATIENT
  Sex: Male
  Weight: 132.9039 kg

DRUGS (10)
  1. IBUPROFEN [Suspect]
     Indication: DRUG USE FOR UNKNOWN INDICATION
     Dosage: (ORAL)
     Route: 048
     Dates: start: 20070319, end: 20070319
  2. ASPIRIN [Suspect]
     Indication: DRUG USE FOR UNKNOWN INDICATION
     Dosage: ORAL
     Route: 048
     Dates: start: 20070319, end: 20070319
  3. FENTANYL [Suspect]
     Indication: BREAKTHROUGH PAIN
     Dosage: ORAL
     Route: 048
     Dates: start: 20070125, end: 20070308
  4. ACTIQ [Concomitant]
  5. ATIVAN [Concomitant]
  6. CYMBALTA [Concomitant]
  7. DOCUSATE [Concomitant]
  8. ROXICODONE [Concomitant]
  9. OXYCONTIN [Concomitant]
  10. METOPROLOL SUCCINATE [Concomitant]

REACTIONS (9)
  - ANXIETY [None]
  - DISTURBANCE IN ATTENTION [None]
  - IMPAIRED DRIVING ABILITY [None]
  - MULTIPLE DRUG OVERDOSE INTENTIONAL [None]
  - PAIN [None]
  - SOMNOLENCE [None]
  - SUICIDE ATTEMPT [None]
  - TREATMENT NONCOMPLIANCE [None]
  - VOMITING [None]
